FAERS Safety Report 7742663-9 (Version None)
Quarter: 2011Q3

REPORT INFORMATION
  Report Type: 
  Country: None (occurrence: None)
  Receive Date: 20110908
  Receipt Date: 20110908
  Transmission Date: 20111222
  Serious: Yes (Hospitalization)
  Sender: FDA-Public Use
  Company Number: None

PATIENT
  Sex: Male
  Weight: 60.1 kg

DRUGS (3)
  1. BEVACIZUMAB (RHUMAB VEGF) [Suspect]
     Dosage: 1020 MG
     Dates: end: 20110816
  2. FLUOROURACIL [Suspect]
     Dosage: 12276 MG
     Dates: end: 20110818
  3. LEUCOVORIN CALCIUM [Concomitant]
     Dosage: 2102 MG
     Dates: end: 20110816

REACTIONS (2)
  - PULMONARY EMBOLISM [None]
  - PAIN IN EXTREMITY [None]
